FAERS Safety Report 19352945 (Version 1)
Quarter: 2021Q2

REPORT INFORMATION
  Report Type: Spontaneous
  Country: FR (occurrence: FR)
  Receive Date: 20210601
  Receipt Date: 20210601
  Transmission Date: 20210717
  Serious: Yes (Life-Threatening, Hospitalization, Other)
  Sender: FDA-Public Use
  Company Number: FR-MALLINCKRODT PHARMACEUTICALS-T202102389

PATIENT
  Age: 16 Year
  Sex: Male
  Weight: 64 kg

DRUGS (9)
  1. DEXCHLORPHENIRAMINE MALEATE. [Suspect]
     Active Substance: DEXCHLORPHENIRAMINE MALEATE
     Indication: PREMEDICATION
     Dosage: 5 MILLIGRAM, QD
     Route: 042
     Dates: start: 20190601, end: 20190602
  2. METHYLPREDNISOLONE. [Suspect]
     Active Substance: METHYLPREDNISOLONE
     Indication: PREMEDICATION
     Dosage: 57 MILLIGRAM, QD
     Route: 042
     Dates: start: 20190601, end: 20190601
  3. ALEMTUZUMAB [Suspect]
     Active Substance: ALEMTUZUMAB
     Dosage: 30 MILLIGRAM, QD
     Route: 041
     Dates: start: 20190706, end: 20190706
  4. ALEMTUZUMAB [Suspect]
     Active Substance: ALEMTUZUMAB
     Dosage: 30 MILLIGRAM, QD
     Route: 041
     Dates: start: 20190601, end: 20190602
  5. SOLUPRED [Concomitant]
     Indication: PRODUCT USED FOR UNKNOWN INDICATION
     Dosage: UNK
     Route: 065
     Dates: start: 20190405
  6. CYCLOSPORINE. [Concomitant]
     Active Substance: CYCLOSPORINE
     Indication: PRODUCT USED FOR UNKNOWN INDICATION
     Dosage: UNK
     Route: 065
     Dates: start: 20190405
  7. OFIRMEV [Suspect]
     Active Substance: ACETAMINOPHEN
     Indication: PREMEDICATION
     Dosage: 1 GRAM, QD
     Route: 042
     Dates: start: 20190601, end: 20190602
  8. SULFAMETHOXAZOLE;TRIMETHOPRIM [Suspect]
     Active Substance: SULFAMETHOXAZOLE\TRIMETHOPRIM
     Indication: PROPHYLAXIS
     Dosage: 800 MILLIGRAM, QD
     Route: 048
     Dates: start: 20190403
  9. ALEMTUZUMAB [Suspect]
     Active Substance: ALEMTUZUMAB
     Indication: HAEMOPHAGOCYTIC LYMPHOHISTIOCYTOSIS
     Dosage: 30 MILLIGRAM, QD
     Route: 041
     Dates: start: 20190518, end: 20190519

REACTIONS (2)
  - Epstein-Barr virus associated lymphoproliferative disorder [Recovered/Resolved with Sequelae]
  - Liver abscess [Unknown]

NARRATIVE: CASE EVENT DATE: 20190627
